FAERS Safety Report 7257386-2 (Version None)
Quarter: 2011Q1

REPORT INFORMATION
  Report Type: 
  Country: None (occurrence: None)
  Receive Date: 20110129
  Receipt Date: 20100825
  Transmission Date: 20110831
  Serious: No
  Sender: FDA-Public Use
  Company Number: US-ABBOTT-10P-163-0661495-00

PATIENT
  Sex: Female
  Weight: 70.37 kg

DRUGS (2)
  1. BC PILL [Concomitant]
  2. HUMIRA [Suspect]
     Indication: PSORIASIS
     Route: 058

REACTIONS (2)
  - DEVICE MALFUNCTION [None]
  - INJECTION SITE HAEMATOMA [None]
